FAERS Safety Report 10362401 (Version 2)
Quarter: 2014Q3

REPORT INFORMATION
  Report Type: Spontaneous
  Country: ES (occurrence: ES)
  Receive Date: 20140805
  Receipt Date: 20140805
  Transmission Date: 20150326
  Serious: Yes (Other)
  Sender: FDA-Public Use
  Company Number: ES-TEVA-496590ISR

PATIENT
  Age: 64 Year
  Sex: Female

DRUGS (2)
  1. OXALIPLATINO TEVA 5MG/ML CONCENTRADO PARA SOLUCI?N PARA PERFUSI?N EFG [Suspect]
     Active Substance: OXALIPLATIN
     Dosage: 217 MG IN 500 ML. PERIPHERAL ROUTE WITH A RHYTHM OF 200 ML/HOUR
     Route: 042
     Dates: start: 2013
  2. CAPECITABINE [Concomitant]
     Active Substance: CAPECITABINE
     Dates: start: 2013

REACTIONS (6)
  - Dyspnoea [Recovered/Resolved]
  - Abscess drainage [Unknown]
  - Tremor [None]
  - Infusion related reaction [Unknown]
  - Bronchospasm [Recovered/Resolved]
  - Hypertension [Recovered/Resolved]

NARRATIVE: CASE EVENT DATE: 201311
